FAERS Safety Report 12703419 (Version 1)
Quarter: 2016Q3

REPORT INFORMATION
  Report Type: Spontaneous
  Country: US (occurrence: US)
  Receive Date: 20160831
  Receipt Date: 20160831
  Transmission Date: 20161109
  Serious: No
  Sender: FDA-Public Use
  Company Number: US-PFIZER INC-2016407700

PATIENT

DRUGS (6)
  1. LYRICA [Suspect]
     Active Substance: PREGABALIN
     Dosage: 150 MG, 3X/DAY
  2. MOTRIN [Suspect]
     Active Substance: IBUPROFEN
     Dosage: 800 MG, UNK
  3. LYRICA [Suspect]
     Active Substance: PREGABALIN
     Dosage: 50 MG, 2X/DAY
  4. HYDROCODONE [Suspect]
     Active Substance: HYDROCODONE
     Dosage: UNK
  5. NORCO [Suspect]
     Active Substance: ACETAMINOPHEN\HYDROCODONE BITARTRATE
     Dosage: AS NEEDED (3 TIMES)
  6. TYLENOL [Suspect]
     Active Substance: ACETAMINOPHEN
     Dosage: 325 MG, UNK

REACTIONS (3)
  - Condition aggravated [Unknown]
  - Rash [Unknown]
  - Pain [Unknown]
